FAERS Safety Report 10111264 (Version 1)
Quarter: 2014Q2

REPORT INFORMATION
  Report Type: Spontaneous
  Country: US (occurrence: US)
  Receive Date: 20140425
  Receipt Date: 20140425
  Transmission Date: 20141212
  Serious: No
  Sender: FDA-Public Use
  Company Number: US-BAYER-2014-060372

PATIENT
  Age: 70 Year
  Sex: Female

DRUGS (3)
  1. ESTRADIOL HEMIHYDRATE (PATCH) [Suspect]
     Dosage: UNK
     Dates: start: 20140324, end: 20140330
  2. ESTRADIOL HEMIHYDRATE (PATCH) [Suspect]
     Dosage: UNK
     Dates: start: 20140407, end: 20140414
  3. ACETYLSALICYLIC ACID (} 100 MG) [Suspect]

REACTIONS (6)
  - Feeling jittery [None]
  - Tremor [None]
  - Headache [None]
  - Drug ineffective [None]
  - Wrong technique in drug usage process [None]
  - Product substitution issue [None]
